FAERS Safety Report 7569075-5 (Version None)
Quarter: 2011Q2

REPORT INFORMATION
  Report Type: 
  Country: None (occurrence: None)
  Receive Date: 20110623
  Receipt Date: 20110614
  Transmission Date: 20111010
  Serious: Yes (Other)
  Sender: FDA-Public Use
  Company Number: US-ASTRAZENECA-2011SE36522

PATIENT
  Sex: Female

DRUGS (1)
  1. NEXIUM [Suspect]
     Route: 048

REACTIONS (7)
  - NEOPLASM MALIGNANT [None]
  - GASTROINTESTINAL TUBE INSERTION [None]
  - COLECTOMY [None]
  - RADICAL HYSTERECTOMY [None]
  - RESECTION OF RECTUM [None]
  - ABDOMINAL DISCOMFORT [None]
  - DRUG DOSE OMISSION [None]
